FAERS Safety Report 6178025-8 (Version None)
Quarter: 2009Q2

REPORT INFORMATION
  Report Type: 
  Country: None (occurrence: None)
  Receive Date: 20090501
  Receipt Date: 20090501
  Transmission Date: 20091009
  Serious: Yes (Hospitalization)
  Sender: FDA-Public Use
  Company Number: None

PATIENT
  Sex: Male
  Weight: 86.5 kg

DRUGS (3)
  1. OXALIPLATIN [Suspect]
     Indication: BILE DUCT CANCER
     Dosage: 180.2 MG IV Q 2 WEEKS
     Route: 042
     Dates: start: 20090320, end: 20090417
  2. SORAFENIB/BAYER/200 MG [Suspect]
     Indication: BILE DUCT CANCER
     Dosage: 200 MG PO DAILY CONT
     Route: 048
     Dates: start: 20090320, end: 20090428
  3. CAPECITABINE [Concomitant]

REACTIONS (1)
  - PULMONARY THROMBOSIS [None]
